FAERS Safety Report 9485317 (Version 2)
Quarter: 2013Q4

REPORT INFORMATION
  Report Type: Report from Study
  Country: JP (occurrence: JP)
  Receive Date: 20130828
  Receipt Date: 20131003
  Transmission Date: 20140711
  Serious: Yes (Life-Threatening, Hospitalization, Other)
  Sender: FDA-Public Use
  Company Number: JP-B.I. PHARMACEUTICALS,INC./RIDGEFIELD-2013-BI-26034NB

PATIENT
  Age: 88 Year
  Sex: Male
  Weight: 41 kg

DRUGS (5)
  1. TRAZENTA [Suspect]
     Indication: TYPE 2 DIABETES MELLITUS
     Dosage: 5 MG
     Route: 048
     Dates: start: 20130129, end: 20130327
  2. FERROMIA [Concomitant]
     Dosage: 100 MG
     Route: 048
     Dates: end: 20130327
  3. PARIET [Concomitant]
     Dosage: 10 MG
     Route: 048
     Dates: end: 20130327
  4. GASLON N [Concomitant]
     Dosage: 4 MG
     Route: 048
     Dates: end: 20130327
  5. MAGMITT [Concomitant]
     Dosage: 660 MG
     Route: 048
     Dates: end: 20130327

REACTIONS (2)
  - Lymphoma [Not Recovered/Not Resolved]
  - Intestinal perforation [Recovered/Resolved]
